FAERS Safety Report 9606973 (Version 1)
Quarter: 2013Q4

REPORT INFORMATION
  Report Type: Spontaneous
  Country: US (occurrence: US)
  Receive Date: 20131008
  Receipt Date: 20131008
  Transmission Date: 20140711
  Serious: No
  Sender: FDA-Public Use
  Company Number: US-009507513-1309USA012525

PATIENT
  Sex: Male

DRUGS (3)
  1. REBETOL [Suspect]
     Indication: CHRONIC HEPATITIS C
     Dosage: 400 MG, BID (800 MG/DAY, DIVIDED DOSE)
     Route: 048
     Dates: start: 20120927, end: 20130821
  2. VICTRELIS [Suspect]
     Indication: CHRONIC HEPATITIS C
     Dosage: COMPLETED A 36 WEEK COURSE
     Route: 048
     Dates: start: 20121216
  3. PEGASYS [Suspect]
     Indication: CHRONIC HEPATITIS C
     Dosage: 180 MICROGRAM, QW (PROCLICK)
     Route: 058
     Dates: start: 20120927, end: 20130821

REACTIONS (1)
  - Anaemia [Unknown]
